FAERS Safety Report 6335511 (Version 1)
Quarter: 2020Q3

REPORT INFORMATION
  Report Type: Report from Study
  Country: BE (occurrence: BE)
  Receive Date: 20070618
  Receipt Date: 20070618
  Transmission Date: 20201104
  Serious: Yes (Hospitalization)
  Sender: FDA-Public Use
  Company Number: BE-JNJFOC-20070501125

PATIENT
  Age: 14 Year
  Sex: Female

DRUGS (10)
  1. CLAVERSAL [Concomitant]
     Route: 061
  2. INFLIXIMAB [Suspect]
     Active Substance: INFLIXIMAB
     Route: 042
  3. ENTOCORT EC [Concomitant]
     Active Substance: BUDESONIDE
     Route: 048
  4. INFLIXIMAB [Suspect]
     Active Substance: INFLIXIMAB
     Route: 042
  5. INFLIXIMAB [Suspect]
     Active Substance: INFLIXIMAB
     Route: 042
  6. INFLIXIMAB [Suspect]
     Active Substance: INFLIXIMAB
     Route: 042
  7. INFLIXIMAB [Suspect]
     Active Substance: INFLIXIMAB
     Route: 042
  8. INFLIXIMAB [Suspect]
     Active Substance: INFLIXIMAB
     Indication: CROHN^S DISEASE
     Dosage: AT WEEK O,2 AND 6
     Route: 042
  9. INFLIXIMAB [Suspect]
     Active Substance: INFLIXIMAB
     Route: 042
  10. ENTOCORT EC [Concomitant]
     Active Substance: BUDESONIDE
     Route: 061

REACTIONS (2)
  - Pneumonia mycoplasmal [Recovered/Resolved]
  - Gastroenteritis rotavirus [Recovered/Resolved]

NARRATIVE: CASE EVENT DATE: 20070501
